FAERS Safety Report 8000779-6 (Version None)
Quarter: 2011Q4

REPORT INFORMATION
  Report Type: 
  Country: None (occurrence: None)
  Receive Date: 20111222
  Receipt Date: 20111219
  Transmission Date: 20120403
  Serious: Yes (Death)
  Sender: FDA-Public Use
  Company Number: DK-B.I. PHARMACEUTICALS,INC./RIDGEFIELD-2011-DE-04002DE

PATIENT
  Sex: Male

DRUGS (8)
  1. DIGOXIN [Concomitant]
     Indication: HEART RATE ABNORMAL
     Dosage: 62.5 MCG
     Route: 048
     Dates: start: 20090301
  2. METOPROLOL TARTRATE [Concomitant]
     Indication: HEART RATE ABNORMAL
     Dosage: 200 MG
     Route: 048
     Dates: start: 20060701
  3. DABIGATRAN [Suspect]
     Indication: CEREBROVASCULAR ACCIDENT PROPHYLAXIS
     Route: 048
     Dates: start: 20060516, end: 20110110
  4. RAMIPRIL [Concomitant]
     Indication: HYPERTENSION
     Dosage: 5 MG
     Route: 048
     Dates: start: 20060101
  5. ACETAMINOPHEN [Concomitant]
     Indication: PAIN
     Route: 048
     Dates: start: 20100101
  6. SIMVASTATIN [Concomitant]
     Indication: HYPERCHOLESTEROLAEMIA
     Dosage: 40 MG
     Route: 048
     Dates: start: 20060501
  7. CENTYL WITH POTASSIUM [Concomitant]
     Indication: HYPERTENSION
     Dosage: 2 TABLETS
     Route: 048
  8. DABIGATRAN [Suspect]
     Indication: ATRIAL FIBRILLATION
     Route: 048
     Dates: start: 20110115, end: 20110223

REACTIONS (1)
  - GLIOBLASTOMA [None]
